FAERS Safety Report 14924230 (Version 1)
Quarter: 2018Q2

REPORT INFORMATION
  Report Type: Spontaneous
  Country: ZA (occurrence: ZA)
  Receive Date: 20180522
  Receipt Date: 20180522
  Transmission Date: 20180711
  Serious: Yes (Life-Threatening, Hospitalization, Other)
  Sender: FDA-Public Use
  Company Number: ZA-PFIZER INC-2018207690

PATIENT
  Age: 35 Year
  Sex: Female
  Weight: 59.2 kg

DRUGS (34)
  1. DELAMANID [Suspect]
     Active Substance: DELAMANID
     Dosage: 100 MG, 2X/DAY
     Dates: start: 20170814
  2. LEVOFLOXACIN. [Suspect]
     Active Substance: LEVOFLOXACIN
     Dosage: 1 G, 1X/DAY
     Dates: start: 20170814
  3. PAS [Suspect]
     Active Substance: AMINOSALICYLIC ACID
     Indication: TUBERCULOSIS
     Dosage: 8 G, 1X/DAY
     Dates: start: 20170814
  4. LINEZOLID. [Suspect]
     Active Substance: LINEZOLID
     Indication: TUBERCULOSIS
     Dosage: 600 MG, 1X/DAY
     Dates: start: 20160316, end: 201609
  5. ISONIAZID. [Suspect]
     Active Substance: ISONIAZID
     Indication: TUBERCULOSIS
     Dosage: 300 MG, 1X/DAY
     Dates: start: 20150528, end: 201609
  6. EPILIM [Suspect]
     Active Substance: VALPROATE SODIUM
     Indication: TUBERCULOSIS
     Dosage: UNK
     Dates: start: 20160418
  7. DELAMANID [Suspect]
     Active Substance: DELAMANID
     Indication: MENINGITIS TUBERCULOUS
     Dosage: UNK
     Dates: start: 20160925, end: 20160929
  8. BEDAQUILINE [Suspect]
     Active Substance: BEDAQUILINE
     Indication: TUBERCULOSIS
     Dosage: 200 MG, UNK (TIW)
     Dates: start: 20160316, end: 201609
  9. BEDAQUILINE [Suspect]
     Active Substance: BEDAQUILINE
     Dosage: 200 MG, UNK (TIW)
     Route: 048
     Dates: start: 20170814
  10. LEVOFLOXACIN. [Suspect]
     Active Substance: LEVOFLOXACIN
     Indication: TUBERCULOSIS
     Dosage: 1000 MG, UNK
     Dates: start: 20160316, end: 201609
  11. PYRAZINAMIDE. [Suspect]
     Active Substance: PYRAZINAMIDE
     Indication: MENINGITIS TUBERCULOUS
     Dosage: UNK
     Dates: start: 20160925, end: 20160929
  12. EPILIM [Suspect]
     Active Substance: VALPROATE SODIUM
     Indication: MENINGITIS TUBERCULOUS
  13. CLOFAZIMINE [Suspect]
     Active Substance: CLOFAZIMINE
     Indication: TUBERCULOSIS
     Dosage: 100 MG, UNK
     Dates: start: 20170814
  14. PAS [Suspect]
     Active Substance: AMINOSALICYLIC ACID
     Indication: MENINGITIS TUBERCULOUS
  15. ATAZANAVIR. [Concomitant]
     Active Substance: ATAZANAVIR SULFATE
     Dosage: UNK
  16. DELAMANID [Suspect]
     Active Substance: DELAMANID
     Indication: TUBERCULOSIS
     Dosage: 100 MG, 2X/DAY
     Dates: start: 20160316, end: 201609
  17. BEDAQUILINE [Suspect]
     Active Substance: BEDAQUILINE
     Indication: MENINGITIS TUBERCULOUS
     Dosage: 600 MG, 1X/DAY
     Dates: start: 20160316, end: 201609
  18. CLOFAZIMINE [Suspect]
     Active Substance: CLOFAZIMINE
     Indication: MENINGITIS TUBERCULOUS
  19. LAMIVUDINE. [Concomitant]
     Active Substance: LAMIVUDINE
     Indication: HIV INFECTION
     Dosage: UNK
  20. BEDAQUILINE [Suspect]
     Active Substance: BEDAQUILINE
     Dosage: UNK
     Dates: start: 20160930
  21. LEVOFLOXACIN. [Suspect]
     Active Substance: LEVOFLOXACIN
     Indication: MENINGITIS TUBERCULOUS
     Dosage: UNK
     Dates: start: 20160925, end: 20160929
  22. PYRAZINAMIDE. [Suspect]
     Active Substance: PYRAZINAMIDE
     Indication: TUBERCULOSIS
     Dosage: 1750 MG, 1X/DAY
     Dates: start: 20150528, end: 201609
  23. RITONAVIR. [Concomitant]
     Active Substance: RITONAVIR
     Dosage: UNK
  24. ISONIAZID. [Suspect]
     Active Substance: ISONIAZID
     Dosage: UNK
     Dates: start: 20160925, end: 20160929
  25. NEVIRAPINE. [Concomitant]
     Active Substance: NEVIRAPINE
     Indication: HIV INFECTION
     Dosage: UNK
  26. DELAMANID [Suspect]
     Active Substance: DELAMANID
     Dosage: UNK
     Dates: start: 20160930
  27. ISONIAZID. [Suspect]
     Active Substance: ISONIAZID
     Indication: MENINGITIS TUBERCULOUS
     Dosage: 300 MG, 1X/DAY
     Dates: start: 20160316
  28. ABACAVIR. [Concomitant]
     Active Substance: ABACAVIR
     Indication: HIV INFECTION
     Dosage: UNK
  29. PYRIDOXINE [Concomitant]
     Active Substance: PYRIDOXINE
     Dosage: UNK
  30. FLUCONAZOLE. [Concomitant]
     Active Substance: FLUCONAZOLE
     Dosage: UNK
  31. LINEZOLID. [Suspect]
     Active Substance: LINEZOLID
     Indication: MENINGITIS TUBERCULOUS
     Dosage: 300 MG, 1X/DAY
     Dates: start: 20170814
  32. BEDAQUILINE [Suspect]
     Active Substance: BEDAQUILINE
     Dosage: UNK
     Dates: start: 20160925, end: 20160929
  33. ISONIAZID. [Suspect]
     Active Substance: ISONIAZID
     Dosage: 300 MG, 1X/DAY
     Dates: start: 20170814
  34. LOPINAVIR W/RITONAVIR [Concomitant]
     Active Substance: LOPINAVIR\RITONAVIR
     Dosage: UNK

REACTIONS (5)
  - Facial paralysis [Recovering/Resolving]
  - Hemiplegia [Recovering/Resolving]
  - Central nervous system lesion [Recovering/Resolving]
  - Toxoplasmosis [Unknown]
  - Seizure [Recovered/Resolved]

NARRATIVE: CASE EVENT DATE: 20160925
